FAERS Safety Report 15797683 (Version 1)
Quarter: 2019Q1

REPORT INFORMATION
  Report Type: Spontaneous
  Country: CN (occurrence: CN)
  Receive Date: 20190108
  Receipt Date: 20190108
  Transmission Date: 20190417
  Serious: Yes (Other)
  Sender: FDA-Public Use
  Company Number: CN-ASTRAZENECA-2019SE01854

PATIENT
  Age: 25962 Day
  Sex: Female

DRUGS (6)
  1. ROSUVASTATIN. [Suspect]
     Active Substance: ROSUVASTATIN
     Indication: CEREBRAL INFARCTION
     Route: 048
     Dates: start: 20181005, end: 20181013
  2. ASPIRIN. [Suspect]
     Active Substance: ASPIRIN
     Indication: COAGULOPATHY
     Route: 050
     Dates: start: 20181005, end: 20181012
  3. CITICOLINE SODIUM [Suspect]
     Active Substance: CITICOLINE SODIUM
     Indication: CEREBRAL INFARCTION
     Route: 048
     Dates: start: 20181005, end: 20181013
  4. TROXERUTIN [Suspect]
     Active Substance: TROXERUTIN
     Indication: CEREBRAL INFARCTION
     Route: 041
     Dates: start: 20181005, end: 20181013
  5. NICERGOLINE [Suspect]
     Active Substance: NICERGOLINE
     Indication: CEREBRAL INFARCTION
     Route: 048
     Dates: start: 20181005, end: 20181012
  6. HERBAL NOS [Suspect]
     Active Substance: HERBALS
     Indication: CEREBRAL INFARCTION
     Route: 041
     Dates: start: 20181005, end: 20181013

REACTIONS (1)
  - Haematemesis [Recovered/Resolved]

NARRATIVE: CASE EVENT DATE: 20181013
